FAERS Safety Report 16376255 (Version 2)
Quarter: 2019Q2

REPORT INFORMATION
  Report Type: Spontaneous
  Country: US (occurrence: US)
  Receive Date: 20190531
  Receipt Date: 20190604
  Transmission Date: 20190711
  Serious: Yes (Other)
  Sender: FDA-Public Use
  Company Number: US-DRREDDYS-USA/USA/19/0110610

PATIENT
  Age: 50 Year
  Sex: Male

DRUGS (1)
  1. DOXORUBICIN HYDROCHLORIDE LIPOSOME INJECTION 20 MG/10 ML (2 MG/ML) AND [Suspect]
     Active Substance: DOXORUBICIN HYDROCHLORIDE
     Indication: ANGIOSARCOMA
     Dosage: 45 MG/M^2 EVERY 4 WEEKS
     Route: 065

REACTIONS (6)
  - Palmar-plantar erythrodysaesthesia syndrome [Recovering/Resolving]
  - Palmoplantar keratoderma [Recovering/Resolving]
  - Bowen^s disease [Recovering/Resolving]
  - Disease progression [Unknown]
  - Toxicity to various agents [Recovering/Resolving]
  - Actinic keratosis [Recovering/Resolving]
